FAERS Safety Report 7898000-2 (Version None)
Quarter: 2011Q4

REPORT INFORMATION
  Report Type: 
  Country: None (occurrence: None)
  Receive Date: 20111107
  Receipt Date: 20111107
  Transmission Date: 20120403
  Serious: Yes (Other)
  Sender: FDA-Public Use
  Company Number: None

PATIENT
  Age: 70 Year
  Sex: Female
  Weight: 52.163 kg

DRUGS (1)
  1. REMICADE [Suspect]
     Indication: CHRONIC LYMPHOCYTIC LEUKAEMIA
     Dosage: 250 ML
     Route: 041
     Dates: start: 20100203, end: 20110608

REACTIONS (1)
  - CHRONIC LYMPHOCYTIC LEUKAEMIA [None]
